FAERS Safety Report 4537072-X (Version None)
Quarter: 2004Q4

REPORT INFORMATION
  Report Type: 
  Country: None (occurrence: None)
  Receive Date: 20041223
  Receipt Date: 20040727
  Transmission Date: 20050328
  Serious: Yes (Hospitalization)
  Sender: FDA-Public Use
  Company Number: US-GLAXOSMITHKLINE-A0519894A

PATIENT
  Age: 34 Year
  Sex: Female

DRUGS (4)
  1. ADVAIR DISKUS 100/50 [Suspect]
     Indication: BRONCHITIS
     Dosage: 1PUFF TWICE PER DAY
     Route: 055
     Dates: start: 20030201, end: 20030701
  2. ANTIBIOTICS [Concomitant]
  3. BUSPAR [Concomitant]
  4. WELLBUTRIN [Concomitant]
     Indication: SMOKING CESSATION THERAPY
     Dosage: 150MG TWICE PER DAY
     Route: 048
     Dates: start: 20020701

REACTIONS (7)
  - CONVULSION [None]
  - DIZZINESS [None]
  - DYSGEUSIA [None]
  - FEAR [None]
  - HEADACHE [None]
  - HYPERHIDROSIS [None]
  - TINNITUS [None]
